FAERS Safety Report 16083980 (Version 2)
Quarter: 2019Q2

REPORT INFORMATION
  Report Type: Spontaneous
  Country: US (occurrence: US)
  Receive Date: 20190318
  Receipt Date: 20190521
  Transmission Date: 20190711
  Serious: No
  Sender: FDA-Public Use
  Company Number: US-PFIZER INC-2019112012

PATIENT
  Age: 93 Year
  Sex: Female

DRUGS (2)
  1. XELJANZ [Suspect]
     Active Substance: TOFACITINIB CITRATE
     Indication: COLITIS ULCERATIVE
     Dosage: 5 MG, UNK
     Dates: start: 20190213, end: 20190213
  2. XELJANZ [Suspect]
     Active Substance: TOFACITINIB CITRATE
     Dosage: UNK
     Dates: start: 20190214

REACTIONS (3)
  - Peripheral swelling [Unknown]
  - Fatigue [Unknown]
  - Chills [Unknown]

NARRATIVE: CASE EVENT DATE: 20190214
